FAERS Safety Report 17277121 (Version 1)
Quarter: 2020Q1

REPORT INFORMATION
  Report Type: Spontaneous
  Country: US (occurrence: US)
  Receive Date: 20191226
  Receipt Date: 20191226
  Transmission Date: 20200409
  Serious: Yes (Other)
  Sender: FDA-Public Use
  Company Number: None

PATIENT
  Age: 70 Year
  Sex: Female
  Weight: 65.77 kg

DRUGS (24)
  1. ACCETYL-L-CARNTINE [Concomitant]
  2. OMEGA-3 ACIDS [Concomitant]
     Active Substance: OMEGA-3 FATTY ACIDS
  3. BENADRUL [Concomitant]
  4. MULTI-VITAMIN [Concomitant]
     Active Substance: .ALPHA.-TOCOPHEROL ACETATE, DL-\ASCORBIC ACID\CYANOCOBALAMIN\FLUORIDE ION\FOLIC ACID\NIACIN\PYRIDOXINE\RIBOFLAVIN\THIAMINE\VITAMIN A\VITAMIN D
  5. BIOTIN [Concomitant]
     Active Substance: BIOTIN
  6. CALCIUM [Concomitant]
     Active Substance: CALCIUM
  7. PHOSPHATIDYLCHOLINE [Concomitant]
     Active Substance: LECITHIN
  8. PROBIOTIC [Concomitant]
     Active Substance: PROBIOTICS NOS
  9. VITAMIN D3 [Concomitant]
     Active Substance: CHOLECALCIFEROL
  10. VITAMIN C [Concomitant]
     Active Substance: ASCORBIC ACID
  11. VITAMIN K2-MK-7 [Concomitant]
  12. LUTEIN [Concomitant]
     Active Substance: LUTEIN
  13. CHOLESTACARE [Concomitant]
     Active Substance: .BETA.-SITOSTEROL\RED YEAST
  14. CRANBERRY EXRTRACT [Concomitant]
  15. ALOE VERA [Concomitant]
     Active Substance: ALOE VERA LEAF
  16. ZEATANTHIN [Concomitant]
  17. A LPRAZOLAM 0.5MG TABLETS [Suspect]
     Active Substance: ALPRAZOLAM
     Indication: SLEEP DISORDER
     Dosage: ?          QUANTITY:2 DF DOSAGE FORM;?
     Route: 048
  18. MUPIROCIN OINTMENT [Concomitant]
     Active Substance: MUPIROCIN
  19. ASPIRIN. [Concomitant]
     Active Substance: ASPIRIN
  20. TYLENOL [Concomitant]
     Active Substance: ACETAMINOPHEN
  21. OMEGA-3 ACIDS [Concomitant]
     Active Substance: OMEGA-3 FATTY ACIDS
  22. CDQ10 [Concomitant]
  23. FIBERMUCIL [Concomitant]
  24. DIGEST ENZYME [Concomitant]

REACTIONS (5)
  - Paraesthesia [None]
  - Back pain [None]
  - Rash [None]
  - Pruritus [None]
  - Nausea [None]

NARRATIVE: CASE EVENT DATE: 201908
